FAERS Safety Report 20171681 (Version 1)
Quarter: 2021Q4

REPORT INFORMATION
  Report Type: Spontaneous
  Country: ME (occurrence: ME)
  Receive Date: 20211210
  Receipt Date: 20211210
  Transmission Date: 20220303
  Serious: Yes (Death, Hospitalization, Other)
  Sender: FDA-Public Use
  Company Number: ME-NOVARTISPH-NVSC2021ME280217

PATIENT
  Sex: Female

DRUGS (1)
  1. VOTRIENT [Suspect]
     Active Substance: PAZOPANIB HYDROCHLORIDE
     Indication: Sarcoma
     Dosage: 800 MG, QD (1X1 1/2 HOURS AFTER MEAL)
     Route: 065
     Dates: start: 201902

REACTIONS (16)
  - General physical health deterioration [Fatal]
  - Fistula [Fatal]
  - Sarcoma [Fatal]
  - Malignant neoplasm progression [Fatal]
  - Metastases to pelvis [Unknown]
  - Hepatic neoplasm [Unknown]
  - Hydronephrosis [Unknown]
  - Lipoma [Unknown]
  - Eastern Cooperative Oncology Group performance status [Unknown]
  - Diarrhoea [Unknown]
  - Malaise [Unknown]
  - Asthenia [Unknown]
  - Decreased appetite [Unknown]
  - Chills [Unknown]
  - Abdominal pain lower [Unknown]
  - Condition aggravated [Unknown]

NARRATIVE: CASE EVENT DATE: 20190901
